FAERS Safety Report 5487169-5 (Version None)
Quarter: 2007Q3

REPORT INFORMATION
  Report Type: 
  Country: None (occurrence: None)
  Receive Date: 20070925
  Receipt Date: 20070604
  Transmission Date: 20080115
  Serious: No
  Sender: FDA-Public Use
  Company Number: 2007US001295

PATIENT
  Age: 76 Year
  Sex: Male

DRUGS (9)
  1. VESICARE [Suspect]
     Indication: HYPERTONIC BLADDER
     Dosage: 10 MG, ORAL
     Route: 048
     Dates: start: 20070501
  2. FLOMAX (MORNIFLUMATE) [Concomitant]
  3. VITAMINS [Concomitant]
  4. LIPITOR [Concomitant]
  5. DIOVAN [Concomitant]
  6. DYAZIDE [Concomitant]
  7. FOSAMAX [Concomitant]
  8. ALEVE [Concomitant]
  9. ASPIRIN [Concomitant]

REACTIONS (2)
  - DRY MOUTH [None]
  - MENTAL DISORDER [None]
